FAERS Safety Report 20899458 (Version 2)
Quarter: 2022Q3

REPORT INFORMATION
  Report Type: Spontaneous
  Country: US (occurrence: None)
  Receive Date: 20220601
  Receipt Date: 20220718
  Transmission Date: 20221027
  Serious: No
  Sender: FDA-Public Use
  Company Number: 2022A197471

PATIENT
  Age: 764 Month
  Sex: Female
  Weight: 77.1 kg

DRUGS (2)
  1. BUDESONIDE\FORMOTEROL\GLYCOPYRRONIUM [Suspect]
     Active Substance: BUDESONIDE\FORMOTEROL\GLYCOPYRRONIUM
     Indication: Asthma
     Route: 055
     Dates: start: 202202, end: 202203
  2. BUDESONIDE\FORMOTEROL\GLYCOPYRRONIUM [Suspect]
     Active Substance: BUDESONIDE\FORMOTEROL\GLYCOPYRRONIUM
     Indication: Asthma
     Route: 055
     Dates: start: 20220504

REACTIONS (5)
  - Tremor [Not Recovered/Not Resolved]
  - Product dose omission issue [Unknown]
  - Product prescribing issue [Unknown]
  - Device use issue [Unknown]
  - Drug delivery system issue [Unknown]

NARRATIVE: CASE EVENT DATE: 20220201
